FAERS Safety Report 22272843 (Version 1)
Quarter: 2023Q2

REPORT INFORMATION
  Report Type: Report from Study
  Country: CA (occurrence: None)
  Receive Date: 20230502
  Receipt Date: 20230502
  Transmission Date: 20230722
  Serious: Yes (Death, Hospitalization, Other)
  Sender: FDA-Public Use
  Company Number: CA-PFIZER INC-202300173661

PATIENT
  Age: 71 Year
  Sex: Female

DRUGS (5)
  1. METHOTREXATE [Suspect]
     Active Substance: METHOTREXATE
     Indication: Product used for unknown indication
     Route: 065
  2. ERELZI [Suspect]
     Active Substance: ETANERCEPT-SZZS
     Indication: Rheumatoid arthritis
     Route: 058
  3. ERELZI [Suspect]
     Active Substance: ETANERCEPT-SZZS
     Route: 058
  4. ERELZI [Suspect]
     Active Substance: ETANERCEPT-SZZS
     Route: 058
  5. ERELZI [Suspect]
     Active Substance: ETANERCEPT-SZZS
     Route: 058

REACTIONS (14)
  - Death [Fatal]
  - Abdominal pain upper [Fatal]
  - Arthritis [Fatal]
  - Chills [Fatal]
  - Contusion [Fatal]
  - Dyspnoea [Fatal]
  - Gout [Fatal]
  - Movement disorder [Fatal]
  - Neoplasm malignant [Fatal]
  - Pain [Fatal]
  - Pericardial effusion [Fatal]
  - Productive cough [Fatal]
  - Rhinorrhoea [Fatal]
  - Seasonal allergy [Fatal]
